FAERS Safety Report 4499780-9 (Version None)
Quarter: 2004Q4

REPORT INFORMATION
  Report Type: 
  Country: None (occurrence: None)
  Receive Date: 20041110
  Receipt Date: 20041110
  Transmission Date: 20050328
  Serious: Yes (Hospitalization)
  Sender: FDA-Public Use
  Company Number: None

PATIENT
  Age: 54 Year
  Sex: Male
  Weight: 59 kg

DRUGS (1)
  1. PHENYTOIN [Suspect]
     Indication: CONVULSION
     Dosage: 300 MG PO HS (PT TAKING EXTRA)
     Route: 048
     Dates: start: 19990101

REACTIONS (7)
  - ANTICONVULSANT DRUG LEVEL ABOVE THERAPEUTIC [None]
  - ATAXIA [None]
  - BLOOD ALBUMIN DECREASED [None]
  - DYSSTASIA [None]
  - FEELING ABNORMAL [None]
  - NYSTAGMUS [None]
  - TREATMENT NONCOMPLIANCE [None]
